FAERS Safety Report 16031203 (Version 3)
Quarter: 2020Q3

REPORT INFORMATION
  Report Type: Report from Study
  Country: US (occurrence: US)
  Receive Date: 20190304
  Receipt Date: 20200811
  Transmission Date: 20201102
  Serious: Yes (Hospitalization, Other)
  Sender: FDA-Public Use
  Company Number: US-ALEXION PHARMACEUTICALS INC.-A201903174

PATIENT
  Age: 67 Year
  Sex: Female

DRUGS (1)
  1. SOLIRIS [Suspect]
     Active Substance: ECULIZUMAB
     Indication: MYASTHENIA GRAVIS
     Dosage: UNK
     Route: 065

REACTIONS (12)
  - Gait disturbance [Unknown]
  - Atrial fibrillation [Unknown]
  - Pericardial effusion [Unknown]
  - Inappropriate schedule of product administration [Recovered/Resolved]
  - Cardiac failure congestive [Unknown]
  - Pyrexia [Unknown]
  - Dysphonia [Unknown]
  - Eyelid ptosis [Unknown]
  - Haemodialysis [Not Recovered/Not Resolved]
  - Fatigue [Unknown]
  - Malaise [Not Recovered/Not Resolved]
  - Cough [Unknown]

NARRATIVE: CASE EVENT DATE: 201901
